FAERS Safety Report 16324848 (Version 7)
Quarter: 2025Q4

REPORT INFORMATION
  Report Type: Spontaneous
  Country: US (occurrence: US)
  Receive Date: 20190517
  Receipt Date: 20251126
  Transmission Date: 20260117
  Serious: No
  Sender: BIOGEN
  Company Number: US-BIOGEN-2017BI00347658

PATIENT
  Sex: Female

DRUGS (3)
  1. TYSABRI [Suspect]
     Active Substance: NATALIZUMAB
     Indication: Multiple sclerosis
  2. TYSABRI [Suspect]
     Active Substance: NATALIZUMAB
     Dosage: DOSAGE TEXT:INFUSED OVER 1 HOUR
     Dates: start: 20070423
  3. TYSABRI [Suspect]
     Active Substance: NATALIZUMAB

REACTIONS (2)
  - Prescribed underdose [Not Recovered/Not Resolved]
  - Memory impairment [Not Recovered/Not Resolved]
